FAERS Safety Report 9312664 (Version 2)
Quarter: 2015Q4

REPORT INFORMATION
  Report Type: Spontaneous
  Country: US (occurrence: US)
  Receive Date: 20130528
  Receipt Date: 20151228
  Transmission Date: 20160305
  Serious: Yes (Other)
  Sender: FDA-Public Use
  Company Number: US-JNJFOC-20130512957

PATIENT
  Sex: Female

DRUGS (2)
  1. LEVAQUIN [Suspect]
     Active Substance: LEVOFLOXACIN
     Indication: SINUSITIS
     Dosage: 1 PILL EACH DAY FOR 10 DAYS
     Route: 048
     Dates: start: 20110215
  2. LEVAQUIN [Suspect]
     Active Substance: LEVOFLOXACIN
     Indication: SINUSITIS
     Dosage: 1 PILL EACH DAY FPR 7 DAYS
     Route: 048
     Dates: start: 20100330

REACTIONS (5)
  - Injury [Not Recovered/Not Resolved]
  - Depression [Not Recovered/Not Resolved]
  - Tendonitis [Unknown]
  - Pain in extremity [Unknown]
  - Tendonitis [Unknown]

NARRATIVE: CASE EVENT DATE: 2010
